FAERS Safety Report 10401157 (Version 3)
Quarter: 2015Q2

REPORT INFORMATION
  Report Type: Spontaneous
  Country: CA (occurrence: CA)
  Receive Date: 20140822
  Receipt Date: 20150402
  Transmission Date: 20150821
  Serious: Yes (Other)
  Sender: FDA-Public Use
  Company Number: CA-BEH-2014044551

PATIENT
  Age: 16 Year
  Sex: Female

DRUGS (4)
  1. PREDNISONE. [Concomitant]
     Active Substance: PREDNISONE
     Indication: IMMUNE THROMBOCYTOPENIC PURPURA
  2. PRIVIGEN [Suspect]
     Active Substance: HUMAN IMMUNOGLOBULIN G
     Indication: IMMUNE THROMBOCYTOPENIC PURPURA
     Dosage: 0.5 G/KG PER DOSE
     Route: 042
  3. ORAL CONTRACEPTIVE [Suspect]
     Active Substance: UNSPECIFIED INGREDIENT
  4. PRIVIGEN [Suspect]
     Active Substance: HUMAN IMMUNOGLOBULIN G
     Dosage: 0.8 G/KG FOR A TOTAL OF 60 G
     Route: 042

REACTIONS (9)
  - Visual impairment [Recovered/Resolved]
  - Headache [Recovered/Resolved]
  - Intracranial venous sinus thrombosis [Recovered/Resolved]
  - Hemiparesis [Recovered/Resolved]
  - Cerebral infarction [Recovered/Resolved]
  - Generalised tonic-clonic seizure [Recovered/Resolved]
  - Vomiting [Recovered/Resolved]
  - Meningitis aseptic [Recovered/Resolved]
  - Nuchal rigidity [Recovered/Resolved]
